FAERS Safety Report 10334579 (Version 2)
Quarter: 2014Q3

REPORT INFORMATION
  Report Type: Spontaneous
  Country: US (occurrence: US)
  Receive Date: 20140723
  Receipt Date: 20140723
  Transmission Date: 20150326
  Serious: No
  Sender: FDA-Public Use
  Company Number: US-UNITED THERAPEUTICS-UTC-045756

PATIENT
  Sex: Male
  Weight: 83.46 kg

DRUGS (2)
  1. REMODULIN [Suspect]
     Active Substance: TREPROSTINIL
     Dosage: 0.004 UG/KG/MIN
     Route: 041
     Dates: start: 20140221
  2. REMODULIN [Suspect]
     Active Substance: TREPROSTINIL
     Dosage: .012 UG/KG/MIN
     Route: 041
     Dates: start: 20140323

REACTIONS (6)
  - Vomiting [Unknown]
  - Headache [Not Recovered/Not Resolved]
  - Decreased appetite [Unknown]
  - Nausea [Not Recovered/Not Resolved]
  - Insomnia [Unknown]
  - Pain [Unknown]

NARRATIVE: CASE EVENT DATE: 2014
